FAERS Safety Report 14918512 (Version 2)
Quarter: 2018Q2

REPORT INFORMATION
  Report Type: Spontaneous
  Country: IT (occurrence: IT)
  Receive Date: 20180521
  Receipt Date: 20180625
  Transmission Date: 20180711
  Serious: Yes (Death, Disabling, Other)
  Sender: FDA-Public Use
  Company Number: IT-009507513-1805ITA007243

PATIENT
  Age: 64 Year
  Sex: Male
  Weight: 109 kg

DRUGS (15)
  1. PARICALCITOL. [Interacting]
     Active Substance: PARICALCITOL
     Dosage: UNK
  2. TAMSULOSIN HYDROCHLORIDE. [Interacting]
     Active Substance: TAMSULOSIN HYDROCHLORIDE
  3. GEMFIBROZIL. [Interacting]
     Active Substance: GEMFIBROZIL
  4. QUINAPRIL HYDROCHLORIDE. [Interacting]
     Active Substance: QUINAPRIL HYDROCHLORIDE
     Dosage: UNK
  5. HYDROCHLOROTHIAZIDE. [Interacting]
     Active Substance: HYDROCHLOROTHIAZIDE
  6. OMEGA-3 MARINE TRIGLYCERIDES [Interacting]
     Active Substance: FISH OIL
     Dosage: UNK
  7. CALCIUM (UNSPECIFIED) [Interacting]
     Active Substance: CALCIUM
     Dosage: UNK
  8. SIMVASTATIN. [Suspect]
     Active Substance: SIMVASTATIN
  9. INFLUENZA VIRUS VACCINE (UNSPECIFIED) [Interacting]
     Active Substance: INFLUENZA VIRUS VACCINE
  10. CLONIDINE. [Interacting]
     Active Substance: CLONIDINE
  11. ASPIRIN. [Interacting]
     Active Substance: ASPIRIN
     Dosage: UNK
  12. VALSARTAN. [Interacting]
     Active Substance: VALSARTAN
  13. TORSEMIDE. [Interacting]
     Active Substance: TORSEMIDE
     Dosage: UNK
  14. PREGABALIN. [Interacting]
     Active Substance: PREGABALIN
  15. INSULIN [Interacting]
     Active Substance: INSULIN NOS
     Dosage: UNK

REACTIONS (19)
  - Hypotonia [Unknown]
  - Arrhythmia [Unknown]
  - Mobility decreased [Unknown]
  - Guillain-Barre syndrome [Unknown]
  - Hypoaesthesia [Unknown]
  - Nephropathy [Unknown]
  - Pneumonia [Unknown]
  - Sepsis [Unknown]
  - Drug interaction [Unknown]
  - Paralysis [Unknown]
  - Rhabdomyolysis [Unknown]
  - Cardiac failure [Unknown]
  - Cardiopulmonary failure [Unknown]
  - Muscular weakness [Unknown]
  - Death [Fatal]
  - Chromaturia [Unknown]
  - Renal impairment [Unknown]
  - Supraventricular tachycardia [Unknown]
  - Pain in extremity [Unknown]
